FAERS Safety Report 8792449 (Version 2)
Quarter: 2015Q2

REPORT INFORMATION
  Report Type: Report from Study
  Country: US (occurrence: US)
  Receive Date: 20120918
  Receipt Date: 20150401
  Transmission Date: 20150821
  Serious: Yes (Death)
  Sender: FDA-Public Use
  Company Number: US-ROCHE-1128437

PATIENT
  Age: 54 Year
  Sex: Male
  Weight: 89.89 kg

DRUGS (6)
  1. ALOXI [Concomitant]
     Active Substance: PALONOSETRON HYDROCHLORIDE
     Dosage: RECEIVED ON 10/MAY/2007
     Route: 065
  2. NAVELBINE [Concomitant]
     Active Substance: VINORELBINE TARTRATE
     Dosage: RECEIVED ON 27/APR/2007, 03/MAY/2007, 10/MAY/2007, 17/MAY/2007
     Route: 065
  3. ATROPINE [Concomitant]
     Active Substance: ATROPINE
     Dosage: RECEIVED ON 27/APR/2007, 10/MAY/2007
     Route: 065
  4. DECADRON [Concomitant]
     Active Substance: DEXAMETHASONE
     Route: 042
  5. AVASTIN [Suspect]
     Active Substance: BEVACIZUMAB
     Indication: BRAIN NEOPLASM MALIGNANT
     Dosage: RECEIVED ON 03/MAY/2007, 17/MAY/2007, 10 MG/KG
     Route: 042
     Dates: start: 20070419
  6. IRINOTECAN [Concomitant]
     Active Substance: IRINOTECAN
     Dosage: RECEIVED ON 27/APR/2007, 03/MAY/2007, 10/MAY/2007
     Route: 042

REACTIONS (3)
  - Death [Fatal]
  - Disease progression [Unknown]
  - Off label use [Unknown]

NARRATIVE: CASE EVENT DATE: 20070604
